FAERS Safety Report 21728974 (Version 1)
Quarter: 2022Q4

REPORT INFORMATION
  Report Type: Spontaneous
  Country: US (occurrence: US)
  Receive Date: 20221214
  Receipt Date: 20221214
  Transmission Date: 20230113
  Serious: No
  Sender: FDA-Public Use
  Company Number: US-ALLERGAN-2221653US

PATIENT
  Age: 11 Year
  Sex: Female

DRUGS (1)
  1. DALBAVANCIN HYDROCHLORIDE [Suspect]
     Active Substance: DALBAVANCIN HYDROCHLORIDE
     Indication: Cyst
     Dosage: 700 MG, SINGL
     Route: 042
     Dates: start: 20220628, end: 20220628

REACTIONS (1)
  - Administration site extravasation [Recovering/Resolving]

NARRATIVE: CASE EVENT DATE: 20220628
